FAERS Safety Report 7550600-5 (Version None)
Quarter: 2011Q2

REPORT INFORMATION
  Report Type: 
  Country: None (occurrence: None)
  Receive Date: 20110616
  Receipt Date: 20110602
  Transmission Date: 20111010
  Serious: Yes (Hospitalization)
  Sender: FDA-Public Use
  Company Number: US-BIOGENIDEC-2011BI001655

PATIENT
  Sex: Female

DRUGS (2)
  1. AVONEX [Suspect]
     Indication: MULTIPLE SCLEROSIS
     Route: 030
     Dates: start: 20101015, end: 20101231
  2. NOVANTRONE [Concomitant]
     Indication: MULTIPLE SCLEROSIS

REACTIONS (5)
  - PULMONARY HYPERTENSION [None]
  - CARDIAC FAILURE CONGESTIVE [None]
  - CEREBRAL ATROPHY [None]
  - HEPATIC ENZYME INCREASED [None]
  - RENAL FUNCTION TEST ABNORMAL [None]
